FAERS Safety Report 4789574-9 (Version None)
Quarter: 2005Q4

REPORT INFORMATION
  Report Type: 
  Country: None (occurrence: None)
  Receive Date: 20051004
  Receipt Date: 20050921
  Transmission Date: 20060501
  Serious: Yes (Hospitalization)
  Sender: FDA-Public Use
  Company Number: MEDI-0003698

PATIENT
  Age: 57 Year
  Sex: Female
  Weight: 62.3696 kg

DRUGS (5)
  1. ETHYOL [Suspect]
     Indication: CHEMOTHERAPY
     Dosage: 500 MG , 5 IN 1 WK, SUBCUTANEOUS
     Route: 058
     Dates: start: 20050527, end: 20050712
  2. ETHYOL [Suspect]
     Indication: RADIOTHERAPY
     Dosage: 500 MG , 5 IN 1 WK, SUBCUTANEOUS
     Route: 058
     Dates: start: 20050527, end: 20050712
  3. RADIATION THERAPY [Concomitant]
  4. CARBOPLATIN [Concomitant]
  5. COMPAZINE [Concomitant]

REACTIONS (5)
  - ERYTHEMA [None]
  - LARYNGEAL OEDEMA [None]
  - NAUSEA [None]
  - ORAL DISCOMFORT [None]
  - STRIDOR [None]
